FAERS Safety Report 15201484 (Version 1)
Quarter: 2018Q3

REPORT INFORMATION
  Report Type: Report from Study
  Country: JP (occurrence: JP)
  Receive Date: 20180726
  Receipt Date: 20180726
  Transmission Date: 20181010
  Serious: Yes (Death, Other)
  Sender: FDA-Public Use
  Company Number: JP-BAXTER-2018BAX020315

PATIENT
  Age: 71 Year
  Sex: Male
  Weight: 57 kg

DRUGS (10)
  1. ENDOXAN 1G [Suspect]
     Active Substance: CYCLOPHOSPHAMIDE
     Indication: ACUTE LYMPHOCYTIC LEUKAEMIA
     Dosage: INJECTION, REMISSION INDUCTION THERAPY, FIRST DOSE, REGIMEN 1
     Route: 065
     Dates: start: 20180213, end: 20180213
  2. ONCOVIN [Suspect]
     Active Substance: VINCRISTINE SULFATE
     Indication: ACUTE LYMPHOCYTIC LEUKAEMIA
     Dosage: INJECTION, REMISSION INDUCTION THERAPY, FIRST DOSE, REGIMEN 1
     Route: 065
     Dates: start: 20180213, end: 20180213
  3. PREDONINE [Suspect]
     Active Substance: PREDNISOLONE
     Indication: ACUTE LYMPHOCYTIC LEUKAEMIA
     Dosage: TABLET, REMISSION INDUCTION THERAPY, FIRST DOSE, REGIMEN 1
     Route: 065
     Dates: start: 20180213, end: 20180217
  4. ICLUSIG [Suspect]
     Active Substance: PONATINIB
     Dosage: TABLET, REGIMEN 2
     Route: 048
     Dates: start: 20180305, end: 20180311
  5. ICLUSIG [Suspect]
     Active Substance: PONATINIB
     Dosage: TABLET, REGIMEN 3
     Route: 048
     Dates: start: 20180312, end: 20180418
  6. PREDONINE [Suspect]
     Active Substance: PREDNISOLONE
     Dosage: TABLET, REMISSION INDUCTION THERAPY, REGIMEN 4
     Route: 065
     Dates: start: 20180304, end: 20180418
  7. THERARUBICIN [Suspect]
     Active Substance: PIRARUBICIN HYDROCHLORIDE
     Indication: ACUTE LYMPHOCYTIC LEUKAEMIA
     Dosage: INJECTION, REMISSION INDUCTION THERAPY, FIRST DOSE, REGIMEN 1
     Route: 065
     Dates: start: 20180213, end: 20180213
  8. ICLUSIG [Suspect]
     Active Substance: PONATINIB
     Indication: ACUTE LYMPHOCYTIC LEUKAEMIA
     Dosage: TABLET, REGIMEN 1
     Route: 048
     Dates: start: 20180222, end: 20180226
  9. PREDONINE [Suspect]
     Active Substance: PREDNISOLONE
     Dosage: TABLET, REMISSION INDUCTION THERAPY, REGIMEN 2
     Route: 065
     Dates: start: 20180222, end: 20180228
  10. PREDONINE [Suspect]
     Active Substance: PREDNISOLONE
     Dosage: TABLET, REMISSION INDUCTION THERAPY, REGIMEN 3
     Route: 065
     Dates: start: 20180301, end: 20180303

REACTIONS (2)
  - Death [Fatal]
  - White blood cell count decreased [Recovered/Resolved]

NARRATIVE: CASE EVENT DATE: 20180226
